FAERS Safety Report 8847577 (Version 1)
Quarter: 2012Q4

REPORT INFORMATION
  Report Type: 
  Country: None (occurrence: US)
  Receive Date: 20121018
  Receipt Date: 20121018
  Transmission Date: 20130627
  Serious: Yes (Other)
  Sender: FDA-Public Use
  Company Number: US-EISAI INC-E0800-00114-SPO-US

PATIENT
  Age: 46 Year
  Sex: Female

DRUGS (8)
  1. SALAGEN [Suspect]
     Indication: SJOGREN^S SYNDROME
     Route: 048
  2. AMLODIPINE [Concomitant]
     Dosage: unknown
  3. HYDROXYCHLOROQUINE SULFATE [Concomitant]
     Dosage: unknown
  4. OMEPRAZOLE [Concomitant]
     Dosage: unknown
  5. DIGOXIN [Concomitant]
     Dosage: unknown
  6. METHOTREXATE [Concomitant]
     Dosage: unknown
  7. FERROUS SULFATE [Concomitant]
     Dosage: unknown
  8. ASPIRIN [Concomitant]
     Dosage: unknown

REACTIONS (2)
  - Cholinergic syndrome [Recovered/Resolved]
  - Accidental overdose [Recovered/Resolved]
